FAERS Safety Report 7972664-7 (Version None)
Quarter: 2011Q4

REPORT INFORMATION
  Report Type: 
  Country: None (occurrence: None)
  Receive Date: 20111209
  Receipt Date: 20111128
  Transmission Date: 20120403
  Serious: Yes (Hospitalization)
  Sender: FDA-Public Use
  Company Number: 1000025827

PATIENT
  Age: 59 Year
  Sex: Female

DRUGS (2)
  1. PAROXETINE HCL [Concomitant]
  2. MILNACIPRAN (MILNACIPRAN HYDROCHLORIDE) [Suspect]
     Dosage: 3 GM, ONCE

REACTIONS (11)
  - ATRIAL FIBRILLATION [None]
  - SEROTONIN SYNDROME [None]
  - TREMOR [None]
  - TOXICITY TO VARIOUS AGENTS [None]
  - CARDIOMYOPATHY ACUTE [None]
  - MENTAL STATUS CHANGES [None]
  - OVERDOSE [None]
  - NO THERAPEUTIC RESPONSE [None]
  - HYPERTHERMIA [None]
  - AUTONOMIC NERVOUS SYSTEM IMBALANCE [None]
  - BLOOD PRESSURE FLUCTUATION [None]
